FAERS Safety Report 6488682-4 (Version None)
Quarter: 2009Q4

REPORT INFORMATION
  Report Type: 
  Country: None (occurrence: None)
  Receive Date: 20091207
  Receipt Date: 20091123
  Transmission Date: 20100525
  Serious: Yes (Other)
  Sender: FDA-Public Use
  Company Number: 2009AL007491

PATIENT
  Sex: Female

DRUGS (4)
  1. MIRTAZAPINE           (AMIDE) (MIRTAZAPINE [Suspect]
     Indication: CHRONIC LYMPHOCYTIC LEUKAEMIA
     Dosage: 30 MG
     Dates: start: 20070701
  2. RISPERIDONE        (ATLLC) [Suspect]
     Indication: PSYCHOTIC DISORDER
     Dosage: 1 MG; QD
     Dates: start: 20070717
  3. CHLORAMBUCIL [Concomitant]
  4. CORTICOSTEROIDS [Concomitant]

REACTIONS (1)
  - NEUTROPENIA [None]
